FAERS Safety Report 22150321 (Version 1)
Quarter: 2023Q1

REPORT INFORMATION
  Report Type: Report from Study
  Country: US (occurrence: US)
  Receive Date: 20230329
  Receipt Date: 20230329
  Transmission Date: 20230418
  Serious: Yes (Hospitalization, Other)
  Sender: FDA-Public Use
  Company Number: US-EXELIXIS-CABO-23061582

PATIENT
  Age: 73 Year
  Sex: Female
  Weight: 62.2 kg

DRUGS (30)
  1. CABOMETYX [Suspect]
     Active Substance: CABOZANTINIB S-MALATE
     Indication: Papillary renal cell carcinoma
     Dosage: 60 MG, QD
     Dates: start: 20221213, end: 20221227
  2. CABOMETYX [Suspect]
     Active Substance: CABOZANTINIB S-MALATE
     Dosage: 40 MG, QD
     Dates: start: 20230201, end: 20230321
  3. OPDIVO [Suspect]
     Active Substance: NIVOLUMAB
     Indication: Papillary renal cell carcinoma
     Dosage: UNK, Q2WEEKS
     Route: 042
     Dates: start: 20221213, end: 20221227
  4. OPDIVO [Suspect]
     Active Substance: NIVOLUMAB
     Dosage: UNK, Q2WEEKS
     Route: 042
     Dates: start: 20230201
  5. IRON [Concomitant]
     Active Substance: IRON
  6. ELIQUIS [Concomitant]
     Active Substance: APIXABAN
  7. VITAMIN B COMPLEX WITH C [Concomitant]
     Active Substance: ASCORBIC ACID\CALCIUM PANTOTHENATE\CYANOCOBALAMIN\NIACINAMIDE\PYRIDOXINE HYDROCHLORIDE\RIBOFLAVIN\TH
  8. FISH OIL\OMEGA-3 FATTY ACIDS [Concomitant]
     Active Substance: FISH OIL\OMEGA-3 FATTY ACIDS
  9. HERBALS\TURMERIC [Concomitant]
     Active Substance: HERBALS\TURMERIC
  10. COLACE [Concomitant]
     Active Substance: DOCUSATE SODIUM
  11. VITAMIN E [Concomitant]
     Active Substance: .ALPHA.-TOCOPHEROL
  12. CARVEDILOL [Concomitant]
     Active Substance: CARVEDILOL
  13. ONDANSETRON HCL [Concomitant]
     Active Substance: ONDANSETRON HYDROCHLORIDE
  14. PROCHLORPERAZINE [Concomitant]
     Active Substance: PROCHLORPERAZINE
  15. TENORMIN [Concomitant]
     Active Substance: ATENOLOL
  16. VITAMINS [Concomitant]
     Active Substance: VITAMINS
  17. TYLENOL [Concomitant]
     Active Substance: ACETAMINOPHEN
     Indication: Pain
  18. VITAMIN D3 [Concomitant]
     Active Substance: CHOLECALCIFEROL
  19. FERROUS SULFATE [Concomitant]
     Active Substance: FERROUS SULFATE
  20. ADVIL [Concomitant]
     Active Substance: IBUPROFEN
     Indication: Pain
  21. MOTRIN [Concomitant]
     Active Substance: IBUPROFEN
     Indication: Pain
  22. PROBIOTICS NOS [Concomitant]
     Active Substance: PROBIOTICS NOS
  23. EMLA [Concomitant]
     Active Substance: LIDOCAINE\PRILOCAINE
     Indication: Pain
  24. VITAMINS [Concomitant]
     Active Substance: VITAMINS
  25. ZOFRAN [Concomitant]
     Active Substance: ONDANSETRON HYDROCHLORIDE
  26. ROXICODONE [Concomitant]
     Active Substance: OXYCODONE HYDROCHLORIDE
     Indication: Pain
  27. COMPAZINE [Concomitant]
     Active Substance: PROCHLORPERAZINE MALEATE
  28. METANX [Concomitant]
     Active Substance: LEVOMEFOLATE CALCIUM\METHYLCOBALAMIN\PYRIDOXAL PHOSPHATE ANHYDROUS
  29. COREG [Concomitant]
     Active Substance: CARVEDILOL
  30. SODIUM CHLORIDE [Concomitant]
     Active Substance: SODIUM CHLORIDE

REACTIONS (20)
  - Myocarditis [Recovering/Resolving]
  - Autoimmune hepatitis [Not Recovered/Not Resolved]
  - Fall [Unknown]
  - Joint dislocation [Unknown]
  - Sinus congestion [Recovering/Resolving]
  - Productive cough [Not Recovered/Not Resolved]
  - Upper-airway cough syndrome [Recovering/Resolving]
  - Blood calcium increased [Recovered/Resolved]
  - Pruritus [Unknown]
  - Dysphonia [Recovering/Resolving]
  - Nausea [Recovering/Resolving]
  - Diarrhoea [Not Recovered/Not Resolved]
  - Blood pressure increased [Recovering/Resolving]
  - Taste disorder [Not Recovered/Not Resolved]
  - Weight decreased [Recovering/Resolving]
  - Fatigue [Unknown]
  - Dyspnoea exertional [Recovering/Resolving]
  - Decreased appetite [Unknown]
  - Cystitis [Unknown]
  - Vomiting [Recovering/Resolving]

NARRATIVE: CASE EVENT DATE: 20221224
